FAERS Safety Report 18666894 (Version 2)
Quarter: 2021Q1

REPORT INFORMATION
  Report Type: Spontaneous
  Country: FR (occurrence: FR)
  Receive Date: 20201228
  Receipt Date: 20210222
  Transmission Date: 20210419
  Serious: Yes (Other)
  Sender: FDA-Public Use
  Company Number: FR-AUROBINDO-AUR-APL-2020-062698

PATIENT
  Age: 58 Year
  Sex: Female
  Weight: 116.5 kg

DRUGS (7)
  1. NEFOPAM MEDISOL [Interacting]
     Active Substance: NEFOPAM HYDROCHLORIDE
     Indication: ANALGESIC INTERVENTION SUPPORTIVE THERAPY
     Dosage: 80 MILLIGRAM, ONCE A DAY
     Route: 041
     Dates: start: 20201105, end: 20201108
  2. VALGANCICLOVIR ARROW TABLET [Interacting]
     Active Substance: VALGANCICLOVIR HYDROCHLORIDE
     Indication: ANTIVIRAL PROPHYLAXIS
     Dosage: 900 MILLIGRAM, ONCE A DAY
     Route: 048
     Dates: start: 20201106
  3. KETAMINE RENAUDIN [Interacting]
     Active Substance: KETAMINE
     Indication: ANALGESIC INTERVENTION SUPPORTIVE THERAPY
     Dosage: 50 MILLIGRAM, ONCE A DAY
     Route: 041
     Dates: start: 20201105, end: 20201109
  4. TACROLIMUS MONOHYDRATE [Interacting]
     Active Substance: TACROLIMUS
     Indication: PROPHYLAXIS AGAINST TRANSPLANT REJECTION
     Dosage: 2 MILLIGRAM, ONCE A DAY
     Route: 048
     Dates: start: 20201106
  5. TOPALGIC (SUPROFEN) [Interacting]
     Active Substance: SUPROFEN
     Indication: ANALGESIC INTERVENTION SUPPORTIVE THERAPY
     Dosage: UNK
     Route: 041
     Dates: start: 20201105, end: 20201108
  6. PIPERACILLINE PANPHARMA [Interacting]
     Active Substance: PIPERACILLIN SODIUM
     Indication: ANTIBIOTIC PROPHYLAXIS
     Dosage: 16 GRAM, ONCE A DAY
     Route: 041
     Dates: start: 20201105, end: 20201108
  7. ALPRAZOLAM. [Suspect]
     Active Substance: ALPRAZOLAM
     Indication: ANXIETY
     Dosage: 1.5 MILLIGRAM, ONCE A DAY
     Route: 048
     Dates: end: 20201104

REACTIONS (1)
  - Tonic clonic movements [Recovered/Resolved]
